FAERS Safety Report 7926751-X (Version None)
Quarter: 2011Q4

REPORT INFORMATION
  Report Type: 
  Country: None (occurrence: None)
  Receive Date: 20111118
  Receipt Date: 20111115
  Transmission Date: 20120403
  Serious: Yes (Hospitalization)
  Sender: FDA-Public Use
  Company Number: US-B.I. PHARMACEUTICALS,INC./RIDGEFIELD-2011-BP-26229BP

PATIENT
  Age: 75 Year
  Sex: Male

DRUGS (6)
  1. BENAZEPRIL HYDROCHLORIDE [Concomitant]
  2. METOLAZONE [Concomitant]
  3. CEFDINIR [Concomitant]
  4. PRADAXA [Suspect]
     Dates: start: 20110501
  5. ALLOPURINOL [Concomitant]
  6. LASIX [Concomitant]

REACTIONS (2)
  - SEPSIS [None]
  - RENAL FAILURE [None]
